FAERS Safety Report 11927048 (Version 2)
Quarter: 2016Q1

REPORT INFORMATION
  Report Type: Spontaneous
  Country: JP (occurrence: JP)
  Receive Date: 20160119
  Receipt Date: 20160205
  Transmission Date: 20160526
  Serious: Yes (Hospitalization)
  Sender: FDA-Public Use
  Company Number: JP-JNJFOC-20160112151

PATIENT
  Age: 54 Year
  Sex: Female

DRUGS (17)
  1. LASIX [Concomitant]
     Active Substance: FUROSEMIDE
     Dosage: TO BE TAKEN 30 MIN AFTER BREAKFAST
     Route: 048
  2. MEDROL [Concomitant]
     Active Substance: METHYLPREDNISOLONE
     Dosage: TO BE TAKEN 30 MIN AFTER BREAKFAST
     Route: 048
  3. LYRICA [Concomitant]
     Active Substance: PREGABALIN
     Dosage: TO BE TAKEN BEFORE SLEEPING
     Route: 048
  4. GOODMIN [Concomitant]
     Active Substance: BROTIZOLAM
     Dosage: TO BE TAKEN BEFORE SLEEPING
     Route: 048
  5. NEXIUM [Concomitant]
     Active Substance: ESOMEPRAZOLE MAGNESIUM
     Dosage: TO BE TAKEN 30 MIN AFTER BREAKFAST
     Route: 048
  6. ALFACALCIDOL [Concomitant]
     Active Substance: ALFACALCIDOL
     Dosage: TO BE TAKEN 30 MIN AFTER BREAKFAST
     Route: 048
  7. TERBINAFINE HYDROCHLORIDE. [Concomitant]
     Active Substance: TERBINAFINE HYDROCHLORIDE
     Route: 061
  8. FOLIAMIN [Concomitant]
     Active Substance: FOLIC ACID
     Dosage: TO BE TAKEN 30 MIN AFTER BREAKFAST ON WEDNESDAY
     Route: 048
  9. CICLOSPORIN [Concomitant]
     Active Substance: CYCLOSPORINE
     Dosage: TO BE TAKEN 30 MIN BEFORE BREAKFAST
     Route: 048
  10. RHEUMATREX [Concomitant]
     Active Substance: METHOTREXATE SODIUM
     Dosage: 30 MIN AFTER BREAKFAST:6MG; DINNER:4MG ON MONDAY
     Route: 048
  11. BAKTAR [Concomitant]
     Active Substance: SULFAMETHOXAZOLE\TRIMETHOPRIM
     Dosage: 30 MIN AFTER BREAKFAST AND DINNER ON TUESDAY AND FRIDAY
     Route: 048
  12. HUMALOG [Concomitant]
     Active Substance: INSULIN LISPRO
     Route: 058
  13. CALCIUM LACTATE [Concomitant]
     Active Substance: CALCIUM LACTATE
     Route: 048
  14. BIOFERMIN R [Concomitant]
     Active Substance: BACILLUS SUBTILIS\LACTOBACILLUS ACIDOPHILUS\STREPTOCOCCUS FAECAIS
     Dosage: TO BE TAKEN 30 MIN AFTER BREAKFAST, LUNCH AND DINNER
     Route: 048
  15. SIMPONI [Suspect]
     Active Substance: GOLIMUMAB
     Indication: RHEUMATOID ARTHRITIS
     Route: 058
     Dates: start: 201206
  16. ALDACTONE A [Concomitant]
     Active Substance: SPIRONOLACTONE
     Dosage: TO BE TAKEN 30 MIN AFTER BREAKFAST
     Route: 048
  17. KINEDAK [Concomitant]
     Active Substance: EPALRESTAT
     Dosage: 30 MIN BEFORE BREAKFAST, LUNCH AND DINNER
     Route: 048

REACTIONS (1)
  - Sinusitis [Recovered/Resolved]

NARRATIVE: CASE EVENT DATE: 201206
